FAERS Safety Report 11513232 (Version 1)
Quarter: 2015Q3

REPORT INFORMATION
  Report Type: Spontaneous
  Country: IT (occurrence: IT)
  Receive Date: 20150916
  Receipt Date: 20150916
  Transmission Date: 20151125
  Serious: Yes (Hospitalization)
  Sender: FDA-Public Use
  Company Number: IT-SUN PHARMACEUTICAL INDUSTRIES LTD-2015RR-103070

PATIENT

DRUGS (2)
  1. LORAZEPAM. [Suspect]
     Active Substance: LORAZEPAM
     Indication: INTENTIONAL SELF-INJURY
     Dosage: 25 DF, SINGLE
     Route: 048
     Dates: start: 20150807, end: 20150807
  2. INSULIN [Suspect]
     Active Substance: INSULIN NOS
     Indication: INTENTIONAL SELF-INJURY
     Dosage: 30 IU, SINGLE
     Route: 058
     Dates: start: 20150807, end: 20150807

REACTIONS (4)
  - Sopor [Unknown]
  - Drug abuse [Unknown]
  - Hypoglycaemia [Unknown]
  - Intentional self-injury [Unknown]

NARRATIVE: CASE EVENT DATE: 20150807
